FAERS Safety Report 7472073-3 (Version None)
Quarter: 2011Q2

REPORT INFORMATION
  Report Type: 
  Country: None (occurrence: None)
  Receive Date: 20110511
  Receipt Date: 20101124
  Transmission Date: 20111010
  Serious: No
  Sender: FDA-Public Use
  Company Number: A0897332A

PATIENT
  Age: 66 Year
  Sex: Female

DRUGS (2)
  1. TYKERB [Suspect]
     Dosage: 1250MG PER DAY
     Route: 065
     Dates: start: 20101112, end: 20101124
  2. XELODA [Concomitant]

REACTIONS (8)
  - PRURITUS GENERALISED [None]
  - HAEMORRHOIDS [None]
  - DIARRHOEA [None]
  - ILL-DEFINED DISORDER [None]
  - DYSPEPSIA [None]
  - FUNGAL INFECTION [None]
  - MALAISE [None]
  - ABDOMINAL PAIN UPPER [None]
